FAERS Safety Report 4680765-4 (Version None)
Quarter: 2005Q2

REPORT INFORMATION
  Report Type: 
  Country: None (occurrence: None)
  Receive Date: 20050601
  Receipt Date: 20050601
  Transmission Date: 20051028
  Serious: Yes (Hospitalization)
  Sender: FDA-Public Use
  Company Number: None

PATIENT
  Age: 92 Year
  Sex: Male
  Weight: 71.82 kg

DRUGS (2)
  1. INTERFERON ALFA-2B RECOMB [Suspect]
     Indication: CHRONIC LYMPHOCYTIC LEUKAEMIA
     Dosage: OTHER IM/SQ
     Route: 030
     Dates: start: 20050401, end: 20050418
  2. DIPHENOXYLATE HCL + ATROPINE SULFATE [Concomitant]

REACTIONS (1)
  - DIARRHOEA [None]
